FAERS Safety Report 23480245 (Version 3)
Quarter: 2024Q2

REPORT INFORMATION
  Report Type: Spontaneous
  Country: US (occurrence: US)
  Receive Date: 20240205
  Receipt Date: 20240401
  Transmission Date: 20240716
  Serious: No
  Sender: FDA-Public Use
  Company Number: US-MTPC-MTDA2024-0001236

PATIENT
  Age: 47 Year
  Sex: Female

DRUGS (4)
  1. RADICAVA ORS [Suspect]
     Active Substance: EDARAVONE
     Indication: Amyotrophic lateral sclerosis
     Dosage: 5 MILLILITER, QD IN THE MORNING FOR 10 DAYS FOLLOWED BY 18 DAY DRUG FREE PERIOD
     Route: 065
     Dates: start: 20220902
  2. RADICAVA ORS [Suspect]
     Active Substance: EDARAVONE
     Indication: Amyotrophic lateral sclerosis
     Dosage: 5 MILLILITER, QD IN THE MORNING FOR 10 DAYS FOLLOWED BY 18 DAY DRUG FREE PERIOD
     Route: 065
     Dates: start: 20220902
  3. RELYVRIO [Suspect]
     Active Substance: SODIUM PHENYLBUTYRATE\TAURURSODIOL
     Indication: Amyotrophic lateral sclerosis
     Dosage: 1 SACHET ONCE DAILY FOR THREE WEEKS, THEN 1 SACHET TWICE DAILY
     Route: 048
     Dates: start: 20221126
  4. RILUZOLE [Concomitant]
     Active Substance: RILUZOLE
     Indication: Amyotrophic lateral sclerosis
     Dosage: UNK
     Route: 065

REACTIONS (2)
  - Neuralgia [Unknown]
  - Gastrointestinal disorder [Unknown]
